FAERS Safety Report 6582752-8 (Version None)
Quarter: 2010Q1

REPORT INFORMATION
  Report Type: 
  Country: None (occurrence: None)
  Receive Date: 20100216
  Receipt Date: 20100204
  Transmission Date: 20100710
  Serious: Yes (Death)
  Sender: FDA-Public Use
  Company Number: US-PFIZER INC-2010001009

PATIENT
  Sex: Male

DRUGS (2)
  1. TIKOSYN [Suspect]
     Dosage: 500 MG, 2X/DAY
     Dates: start: 20090901, end: 20091201
  2. TIKOSYN [Suspect]
     Dosage: 250 MG, 2X/DAY
     Dates: start: 20091201

REACTIONS (1)
  - DEATH [None]
